FAERS Safety Report 5099652-5 (Version None)
Quarter: 2006Q3

REPORT INFORMATION
  Report Type: 
  Country: None (occurrence: None)
  Receive Date: 20060908
  Receipt Date: 20060830
  Transmission Date: 20061208
  Serious: Yes (Death)
  Sender: FDA-Public Use
  Company Number: FR-AVENTIS-200613030FR

PATIENT
  Age: 88 Year
  Sex: Female

DRUGS (8)
  1. LASILIX [Suspect]
     Indication: DRUG USE FOR UNKNOWN INDICATION
     Route: 048
     Dates: start: 20060326
  2. PRIMPERAN TAB [Suspect]
     Indication: DRUG USE FOR UNKNOWN INDICATION
     Dates: start: 20060329
  3. ASPIRIN [Suspect]
     Indication: DRUG USE FOR UNKNOWN INDICATION
     Route: 048
     Dates: start: 20060221
  4. INIPOMP [Suspect]
     Indication: DRUG USE FOR UNKNOWN INDICATION
     Route: 048
     Dates: start: 20060301
  5. RIVOTRIL [Suspect]
     Indication: ANXIETY
     Route: 048
     Dates: start: 20060406, end: 20060411
  6. CIFLOX [Concomitant]
     Indication: SYSTEMIC INFLAMMATORY RESPONSE SYNDROME
     Dates: start: 20060320, end: 20060328
  7. ROCEPHIN [Concomitant]
     Indication: SYSTEMIC INFLAMMATORY RESPONSE SYNDROME
     Dates: start: 20060320, end: 20060409
  8. NEUPOGEN [Concomitant]
     Indication: DRUG USE FOR UNKNOWN INDICATION
     Dates: start: 20060412

REACTIONS (4)
  - ANXIETY [None]
  - BACTERIAL INFECTION [None]
  - NEUTROPENIA [None]
  - SYSTEMIC INFLAMMATORY RESPONSE SYNDROME [None]
